FAERS Safety Report 9399746 (Version 1)
Quarter: 2013Q3

REPORT INFORMATION
  Report Type: Spontaneous
  Country: GB (occurrence: None)
  Receive Date: 20130710
  Receipt Date: 20130710
  Transmission Date: 20140515
  Serious: Yes (Other)
  Sender: FDA-Public Use
  Company Number: ABR_01005_2013

PATIENT
  Age: 3 Year
  Sex: Female
  Weight: 7.8 kg

DRUGS (4)
  1. ERYTHROMYCIN ETHYLSUCCINATE [Suspect]
     Dosage: DF
     Dates: start: 20130419
  2. AMOXICILLIN [Concomitant]
  3. CHLORPHENAMINE [Concomitant]
  4. SALBUTAMOL [Concomitant]

REACTIONS (1)
  - Onychomadesis [None]
